FAERS Safety Report 5452217-5 (Version None)
Quarter: 2007Q3

REPORT INFORMATION
  Report Type: 
  Country: None (occurrence: None)
  Receive Date: 20070912
  Receipt Date: 20070907
  Transmission Date: 20080115
  Serious: Yes (Death)
  Sender: FDA-Public Use
  Company Number: US020247

PATIENT
  Age: 34 Year
  Sex: Female
  Weight: 76.6579 kg

DRUGS (1)
  1. FENTORA [Suspect]
     Indication: HEADACHE
     Dosage: 400 UG BACCAL
     Route: 002
     Dates: start: 20070501, end: 20070517

REACTIONS (4)
  - ACCIDENTAL OVERDOSE [None]
  - OVERDOSE [None]
  - SUICIDAL IDEATION [None]
  - UNRESPONSIVE TO STIMULI [None]
